FAERS Safety Report 5377859-7 (Version None)
Quarter: 2007Q3

REPORT INFORMATION
  Report Type: 
  Country: None (occurrence: None)
  Receive Date: 20070703
  Receipt Date: 20070628
  Transmission Date: 20080115
  Serious: Yes (Hospitalization)
  Sender: FDA-Public Use
  Company Number: US-PFIZER INC-2007053672

PATIENT
  Age: 80 Year
  Sex: Female

DRUGS (1)
  1. DETROL LA [Suspect]

REACTIONS (2)
  - DRY MOUTH [None]
  - URINARY TRACT DISORDER [None]
